FAERS Safety Report 8393158-3 (Version None)
Quarter: 2012Q2

REPORT INFORMATION
  Report Type: 
  Country: None (occurrence: None)
  Receive Date: 20120529
  Receipt Date: 20120420
  Transmission Date: 20120825
  Serious: No
  Sender: FDA-Public Use
  Company Number: US-ABBOTT-12P-163-0928412-00

PATIENT
  Sex: Male
  Weight: 127.12 kg

DRUGS (9)
  1. SIMVASTATIN [Concomitant]
     Indication: BLOOD CHOLESTEROL
  2. FEUROSEMIDE [Concomitant]
     Indication: DIURETIC THERAPY
  3. MULTI-VITAMIN [Concomitant]
     Indication: VITAMIN SUPPLEMENTATION
  4. BENICAR [Concomitant]
     Indication: BLOOD PRESSURE
  5. ANDROGEL [Suspect]
     Indication: BLOOD TESTOSTERONE DECREASED
     Route: 061
     Dates: start: 20120201
  6. ASPIRIN [Concomitant]
     Indication: ANTICOAGULANT THERAPY
  7. PLAVIX [Concomitant]
     Indication: ANTICOAGULANT THERAPY
  8. ZINC SULFATE [Concomitant]
     Indication: MINERAL SUPPLEMENTATION
  9. BYSTOLIC [Concomitant]
     Indication: BLOOD PRESSURE

REACTIONS (1)
  - DRUG EFFECT DECREASED [None]
